FAERS Safety Report 6003137-9 (Version None)
Quarter: 2008Q4

REPORT INFORMATION
  Report Type: 
  Country: None (occurrence: None)
  Receive Date: 20081212
  Receipt Date: 20081212
  Transmission Date: 20090506
  Serious: Yes (Hospitalization)
  Sender: FDA-Public Use
  Company Number: None

PATIENT
  Sex: Male
  Weight: 75.7 kg

DRUGS (18)
  1. CYCLOPHOSPHAMIDE [Suspect]
     Dosage: 1357 MG
     Dates: start: 20081015, end: 20081015
  2. DOXORUBICIN HYDROCHLORIDE [Suspect]
     Dosage: 90 MG
     Dates: end: 20081015
  3. PREDNISONE [Suspect]
     Dosage: 150 MG
     Dates: end: 20081019
  4. RITUXIMAB (MOAB C2B8 ANTI CD20, CHIMERIC) [Suspect]
     Dosage: 679 MG
     Dates: end: 20081015
  5. .. [Concomitant]
  6. ACETAMINOPHEN [Concomitant]
  7. CEFEPIME [Concomitant]
  8. DIMEGLUMINE [Concomitant]
  9. DIPHENHYDRAMINE [Concomitant]
  10. DOCUSATE [Concomitant]
  11. FOSAPREPITANT [Concomitant]
  12. GRANISETERON [Concomitant]
  13. HEPARIN [Concomitant]
  14. HYDROCORTISONE ACETATE [Concomitant]
  15. LAMIVUDINE [Concomitant]
  16. LORAZEPAM [Concomitant]
  17. VALACYCLOVIR [Concomitant]
  18. VANCOMYCIN [Concomitant]

REACTIONS (6)
  - CULTURE URINE POSITIVE [None]
  - ENTEROCOCCAL INFECTION [None]
  - HYPERGLYCAEMIA [None]
  - NEUTROPENIA [None]
  - PYREXIA [None]
  - THROMBOCYTOPENIA [None]
